FAERS Safety Report 5136654-4 (Version None)
Quarter: 2006Q4

REPORT INFORMATION
  Report Type: 
  Country: None (occurrence: None)
  Receive Date: 20061023
  Receipt Date: 20061006
  Transmission Date: 20070319
  Serious: Yes (Life-Threatening, Hospitalization)
  Sender: FDA-Public Use
  Company Number: TRP_0849_2006

PATIENT
  Age: 53 Year
  Sex: Male
  Weight: 64.8644 kg

DRUGS (6)
  1. RIBASPHERE [Suspect]
     Indication: HEPATITIS C
     Dosage: 1000 MG QDAY PO
     Route: 048
     Dates: start: 20060413, end: 20060721
  2. PEGASYS [Suspect]
     Indication: HEPATITIS C
     Dosage: 180 MCG QWK SC
     Route: 058
     Dates: start: 20060413, end: 20060721
  3. PEGASYS [Suspect]
     Indication: HEPATITIS C
     Dosage: 180 MCG QWK SC
     Route: 058
     Dates: start: 20060801
  4. RISPERDAL [Concomitant]
  5. COGENTIN [Concomitant]
  6. TRAZODONE HCL [Concomitant]

REACTIONS (4)
  - CONDITION AGGRAVATED [None]
  - SCHIZOPHRENIA [None]
  - STRESS [None]
  - SUICIDE ATTEMPT [None]
